FAERS Safety Report 14343747 (Version 2)
Quarter: 2018Q1

REPORT INFORMATION
  Report Type: Report from Study
  Country: CA (occurrence: CA)
  Receive Date: 20180102
  Receipt Date: 20180109
  Transmission Date: 20180509
  Serious: Yes (Hospitalization)
  Sender: FDA-Public Use
  Company Number: PHHY2017CA197330

PATIENT
  Sex: Male

DRUGS (1)
  1. VOTRIENT [Suspect]
     Active Substance: PAZOPANIB HYDROCHLORIDE
     Indication: SOFT TISSUE SARCOMA
     Dosage: 800 MG, UNK
     Route: 048
     Dates: start: 20171213, end: 20171229

REACTIONS (5)
  - Pancreatitis [Unknown]
  - Chromaturia [Unknown]
  - Abdominal pain [Unknown]
  - Constipation [Unknown]
  - Abnormal faeces [Unknown]
